FAERS Safety Report 24632364 (Version 1)
Quarter: 2024Q4

REPORT INFORMATION
  Report Type: Spontaneous
  Country: FR (occurrence: FR)
  Receive Date: 20241118
  Receipt Date: 20241118
  Transmission Date: 20250115
  Serious: Yes (Disabling, Other)
  Sender: MYLAN
  Company Number: FR-PFM-2024-05749

PATIENT
  Age: 16 Year
  Sex: Female

DRUGS (1)
  1. ISOTRETINOIN [Suspect]
     Active Substance: ISOTRETINOIN
     Indication: Acne
     Dosage: UNK (LESS THAN 0.5MG/KG)
     Route: 065

REACTIONS (3)
  - Myalgia [Recovered/Resolved]
  - Off label use [Unknown]
  - Prescribed underdose [Unknown]
